FAERS Safety Report 8049284-1 (Version None)
Quarter: 2012Q1

REPORT INFORMATION
  Report Type: 
  Country: None (occurrence: None)
  Receive Date: 20120117
  Receipt Date: 20120116
  Transmission Date: 20120608
  Serious: Yes (Hospitalization)
  Sender: FDA-Public Use
  Company Number: SE-ROCHE-1022560

PATIENT
  Age: 63 Year
  Sex: Male

DRUGS (3)
  1. GANCICLOVIR SODIUM [Suspect]
     Dates: start: 20110802, end: 20110817
  2. GANCICLOVIR SODIUM [Suspect]
     Indication: PRODUCT USED FOR UNKNOWN INDICATION
     Dates: start: 20110701, end: 20110715
  3. VALCYTE [Suspect]
     Indication: PRODUCT USED FOR UNKNOWN INDICATION
     Dates: start: 20110817, end: 20110829

REACTIONS (3)
  - MANTLE CELL LYMPHOMA [None]
  - ENCEPHALITIS [None]
  - PANCYTOPENIA [None]
